FAERS Safety Report 6086187-6 (Version None)
Quarter: 2009Q1

REPORT INFORMATION
  Report Type: 
  Country: None (occurrence: None)
  Receive Date: 20090217
  Receipt Date: 20090217
  Transmission Date: 20090719
  Serious: No
  Sender: FDA-Public Use
  Company Number: None

PATIENT
  Age: 53 Year
  Sex: Female
  Weight: 89.8122 kg

DRUGS (1)
  1. MELOXICAM [Suspect]
     Indication: REPETITIVE STRAIN INJURY
     Dosage: 7.5 MG 1 X PER DAY PO
     Route: 048
     Dates: start: 20080226, end: 20080328

REACTIONS (1)
  - TINNITUS [None]
